FAERS Safety Report 18643946 (Version 1)
Quarter: 2020Q4

REPORT INFORMATION
  Report Type: Spontaneous
  Country: US (occurrence: US)
  Receive Date: 20201221
  Receipt Date: 20201221
  Transmission Date: 20210114
  Serious: No
  Sender: FDA-Public Use
  Company Number: US-MYLANLABS-2020M1103916

PATIENT
  Sex: Female
  Weight: 71 kg

DRUGS (3)
  1. EPIPEN [Suspect]
     Active Substance: EPINEPHRINE
     Indication: MULTIPLE ALLERGIES
     Dosage: AS NEEDED (NEVER USED )
     Route: 030
  2. EPIPEN [Suspect]
     Active Substance: EPINEPHRINE
     Indication: ANAPHYLACTIC REACTION
  3. XOLAIR [Concomitant]
     Active Substance: OMALIZUMAB
     Indication: SEASONAL ALLERGY
     Dosage: MONTHLY OR EVERY TWO WEEKS

REACTIONS (1)
  - Product quality issue [None]
